FAERS Safety Report 6241466-4 (Version None)
Quarter: 2009Q2

REPORT INFORMATION
  Report Type: 
  Country: None (occurrence: None)
  Receive Date: 20090623
  Receipt Date: 20031010
  Transmission Date: 20091009
  Serious: Yes (Life-Threatening, Hospitalization)
  Sender: FDA-Public Use
  Company Number: BE-ROCHE-345897

PATIENT
  Sex: Male

DRUGS (56)
  1. DACLIZUMAB [Suspect]
     Route: 042
  2. MYCOPHENOLATE MOFETIL [Suspect]
     Route: 048
     Dates: start: 20040131
  3. MYCOPHENOLATE MOFETIL [Suspect]
     Dosage: ROUTE: PO
     Route: 050
     Dates: start: 20030827
  4. MYCOPHENOLATE MOFETIL [Suspect]
     Dosage: ROUTE: IV
     Route: 050
     Dates: start: 20030829
  5. MYCOPHENOLATE MOFETIL [Suspect]
     Route: 048
     Dates: start: 20030826
  6. MYCOPHENOLATE MOFETIL [Suspect]
     Route: 048
     Dates: start: 20030909
  7. MYCOPHENOLATE MOFETIL [Suspect]
     Route: 048
     Dates: start: 20031219
  8. MYCOPHENOLATE MOFETIL [Suspect]
     Route: 048
     Dates: start: 20031229
  9. MYCOPHENOLATE MOFETIL [Suspect]
     Route: 048
     Dates: start: 20040227
  10. CYCLOSPORINE [Suspect]
     Dosage: DRUG REPORTED: CYCLOSPORINE
     Route: 042
     Dates: start: 20030827
  11. CYCLOSPORINE [Suspect]
     Route: 042
     Dates: start: 20030831
  12. CYCLOSPORINE [Suspect]
     Route: 042
     Dates: start: 20030901
  13. CYCLOSPORINE [Suspect]
     Dosage: DRUG REPORTED: CYCLOSPORINE
     Route: 048
     Dates: start: 20041008
  14. CYCLOSPORINE [Suspect]
     Dosage: DRUG REPORTED: CYCLOSPORINE
     Route: 048
     Dates: start: 20030826
  15. CYCLOSPORINE [Suspect]
     Route: 048
     Dates: start: 20030827
  16. CYCLOSPORINE [Suspect]
     Route: 048
     Dates: start: 20030909
  17. CYCLOSPORINE [Suspect]
     Route: 048
     Dates: start: 20030920
  18. CYCLOSPORINE [Suspect]
     Route: 048
     Dates: start: 20050412
  19. MEDROL [Suspect]
     Route: 048
     Dates: start: 20030909
  20. CLIRADON [Concomitant]
     Route: 048
     Dates: start: 20031114
  21. BACTRIM DS [Concomitant]
     Route: 048
     Dates: start: 20030830, end: 20030831
  22. BACTRIM DS [Concomitant]
     Route: 048
     Dates: start: 20030909, end: 20040223
  23. ZANTAC [Concomitant]
     Dates: start: 20030827
  24. ENOXAPARIN SODIUM [Concomitant]
     Dates: start: 20030827, end: 20030827
  25. SELDANE [Concomitant]
     Dates: start: 20030827
  26. XANAX [Concomitant]
     Dates: end: 20030909
  27. CYMEVENE [Concomitant]
     Route: 042
     Dates: start: 20030827
  28. ACTRAPID [Concomitant]
     Dosage: DOSING UNIT: IU, FREQUENCY: -/1 DAY
     Route: 042
     Dates: start: 20030829, end: 20030910
  29. AMLODIPINE [Concomitant]
     Route: 048
     Dates: start: 20030908, end: 20030911
  30. ASAFLOW [Concomitant]
     Route: 048
     Dates: start: 20030830, end: 20030831
  31. ASAFLOW [Concomitant]
     Route: 048
     Dates: start: 20030919
  32. BUMEX [Concomitant]
     Route: 042
     Dates: start: 20030828, end: 20030829
  33. CEDOCARD [Concomitant]
     Route: 042
     Dates: start: 20030827, end: 20030829
  34. CEFACIDAL [Concomitant]
     Dosage: ROUTE: IV
     Route: 050
     Dates: start: 20030826, end: 20030827
  35. CEFACIDAL [Concomitant]
     Dosage: ROUTE: PO
     Route: 050
     Dates: start: 20030828, end: 20030929
  36. PERINDOPRIL ERBUMINE [Concomitant]
     Dosage: DRUG REPORTED: COVERCYL
     Route: 048
     Dates: start: 20030905
  37. PERINDOPRIL ERBUMINE [Concomitant]
     Route: 048
     Dates: start: 20031016
  38. PERINDOPRIL ERBUMINE [Concomitant]
     Dosage: DRUG REPORTED: COVERCYL
     Route: 048
     Dates: start: 20030907
  39. CYMEVENE [Concomitant]
     Route: 048
     Dates: start: 20030908, end: 20031215
  40. CYMEVENE [Concomitant]
     Route: 048
     Dates: start: 20040221, end: 20040829
  41. CYMEVENE [Concomitant]
     Route: 042
     Dates: start: 20040131
  42. DOBUTREX [Concomitant]
     Route: 042
     Dates: start: 20030828, end: 20030830
  43. GLURENORM [Concomitant]
     Route: 048
     Dates: start: 20031114
  44. LASIX [Concomitant]
     Route: 042
     Dates: start: 20030902
  45. LASIX [Concomitant]
     Route: 048
     Dates: start: 20030909, end: 20030911
  46. LIPITOR [Concomitant]
     Route: 048
     Dates: start: 20030921
  47. SELOZOK [Concomitant]
     Route: 048
     Dates: start: 20030909
  48. SELOKEN [Concomitant]
     Route: 042
     Dates: start: 20030826, end: 20030829
  49. SELOKEN [Concomitant]
     Route: 042
     Dates: start: 20030904
  50. TAZOCIN [Concomitant]
     Route: 042
     Dates: start: 20030830, end: 20030905
  51. ZINACEF [Concomitant]
     Route: 042
     Dates: start: 20030829, end: 20030830
  52. MEDROL [Suspect]
     Route: 048
     Dates: start: 20040223
  53. SOLU-MEDROL [Suspect]
     Route: 042
     Dates: start: 20030826
  54. SOLU-MEDROL [Suspect]
     Route: 048
     Dates: start: 20030908, end: 20030909
  55. SELOKEN [Concomitant]
     Route: 048
     Dates: start: 20030905
  56. SELOKEN [Concomitant]
     Route: 048
     Dates: start: 20030907, end: 20030909

REACTIONS (4)
  - CYTOMEGALOVIRUS INFECTION [None]
  - LUNG INFECTION PSEUDOMONAL [None]
  - MYOCARDIAL INFARCTION [None]
  - PERIRENAL HAEMATOMA [None]
